FAERS Safety Report 10518877 (Version 2)
Quarter: 2014Q4

REPORT INFORMATION
  Report Type: Spontaneous
  Country: IT (occurrence: IT)
  Receive Date: 20141015
  Receipt Date: 20141113
  Transmission Date: 20150528
  Serious: Yes (Other)
  Sender: FDA-Public Use
  Company Number: IT-JNJFOC-20141004746

PATIENT
  Age: 47 Year
  Sex: Female

DRUGS (2)
  1. VATRAN [Suspect]
     Active Substance: DIAZEPAM
     Indication: PRODUCT USED FOR UNKNOWN INDICATION
     Route: 048
     Dates: start: 20141007, end: 20141007
  2. TOPAMAX [Suspect]
     Active Substance: TOPIRAMATE
     Indication: PRODUCT USED FOR UNKNOWN INDICATION
     Route: 048
     Dates: start: 20141007, end: 20141007

REACTIONS (2)
  - Self injurious behaviour [Unknown]
  - Intentional overdose [Recovered/Resolved]

NARRATIVE: CASE EVENT DATE: 20141007
